FAERS Safety Report 8802756 (Version 2)
Quarter: 2015Q2

REPORT INFORMATION
  Report Type: Report from Study
  Country: US (occurrence: US)
  Receive Date: 20120921
  Receipt Date: 20150630
  Transmission Date: 20150821
  Serious: Yes (Death, Hospitalization)
  Sender: FDA-Public Use
  Company Number: US-ROCHE-1104418

PATIENT
  Sex: Male

DRUGS (28)
  1. MAGNESIUM SULFATE. [Concomitant]
     Active Substance: MAGNESIUM SULFATE
     Indication: BLOOD MAGNESIUM DECREASED
     Route: 042
  2. SONATA (UNITED STATES) [Concomitant]
     Indication: INSOMNIA
     Route: 048
  3. PHENERGAN [Concomitant]
     Active Substance: PROMETHAZINE HYDROCHLORIDE
     Indication: NAUSEA
     Dosage: P.R.N
     Route: 048
  4. K-DUR [Concomitant]
     Active Substance: POTASSIUM CHLORIDE
     Route: 048
  5. PEPTINEX DT [Concomitant]
     Dosage: 2 CC
     Route: 065
  6. ALLOPURINOL. [Concomitant]
     Active Substance: ALLOPURINOL
     Route: 048
  7. CAMPTOSAR [Concomitant]
     Active Substance: IRINOTECAN HYDROCHLORIDE
     Route: 042
  8. ELOXATIN [Concomitant]
     Active Substance: OXALIPLATIN
     Route: 042
  9. TAXOTERE [Concomitant]
     Active Substance: DOCETAXEL
  10. NIFEDIPINE. [Concomitant]
     Active Substance: NIFEDIPINE
     Indication: HYPERTENSION
     Route: 048
  11. AVASTIN [Suspect]
     Active Substance: BEVACIZUMAB
     Indication: OESOPHAGEAL CARCINOMA
     Route: 042
     Dates: start: 20071025
  12. FENTANYL. [Concomitant]
     Active Substance: FENTANYL
     Route: 061
  13. ATENOLOL. [Concomitant]
     Active Substance: ATENOLOL
     Indication: TACHYCARDIA
     Route: 048
  14. ATIVAN [Concomitant]
     Active Substance: LORAZEPAM
     Indication: ANXIETY
     Route: 065
  15. XELODA [Suspect]
     Active Substance: CAPECITABINE
     Indication: PRODUCT USED FOR UNKNOWN INDICATION
     Route: 048
  16. CALCITRIOL. [Concomitant]
     Active Substance: CALCITRIOL
     Dosage: MONDAY,WEDNESDAY,FRIDAY
     Route: 065
  17. LOVENOX [Concomitant]
     Active Substance: ENOXAPARIN SODIUM
     Route: 058
  18. LASIX [Concomitant]
     Active Substance: FUROSEMIDE
     Indication: PLEURAL EFFUSION
  19. ZOSYN [Concomitant]
     Active Substance: PIPERACILLIN SODIUM\TAZOBACTAM SODIUM
     Indication: PNEUMONIA
     Dosage: 4-5 G
     Route: 042
  20. INTRALIPIDS [Concomitant]
  21. BENADRYL [Concomitant]
     Active Substance: DIPHENHYDRAMINE HYDROCHLORIDE
     Route: 042
  22. IMODIUM [Concomitant]
     Active Substance: LOPERAMIDE HYDROCHLORIDE
     Indication: DIARRHOEA
  23. CREON [Concomitant]
     Active Substance: PANCRELIPASE AMYLASE\PANCRELIPASE LIPASE\PANCRELIPASE PROTEASE
  24. ATROPINE [Concomitant]
     Active Substance: ATROPINE
     Route: 042
  25. DECADRON [Concomitant]
     Active Substance: DEXAMETHASONE
  26. VICODIN [Concomitant]
     Active Substance: ACETAMINOPHEN\HYDROCODONE BITARTRATE
     Indication: PAIN
  27. PRILOSEC [Concomitant]
     Active Substance: OMEPRAZOLE MAGNESIUM
     Indication: DYSPEPSIA
     Route: 048
  28. DOXAZOSIN [Concomitant]
     Active Substance: DOXAZOSIN\DOXAZOSIN MESYLATE
     Route: 048

REACTIONS (21)
  - Nausea [Unknown]
  - Hypokalaemia [Unknown]
  - Catheter site discharge [Unknown]
  - Asthenia [Unknown]
  - Tachycardia [Unknown]
  - Diarrhoea [Unknown]
  - Dyspepsia [Unknown]
  - Malaise [Unknown]
  - Chills [Unknown]
  - Dizziness [Unknown]
  - Dyspnoea [Unknown]
  - Vomiting [Unknown]
  - Cough [Unknown]
  - Tremor [Unknown]
  - Pneumonia [Unknown]
  - Eructation [Unknown]
  - Fatigue [Unknown]
  - Death [Fatal]
  - Abdominal pain [Unknown]
  - Pleural effusion [Unknown]
  - Off label use [Unknown]
